FAERS Safety Report 8371963-7 (Version None)
Quarter: 2012Q2

REPORT INFORMATION
  Report Type: 
  Country: None (occurrence: None)
  Receive Date: 20120518
  Receipt Date: 20120510
  Transmission Date: 20120825
  Serious: Yes (Death)
  Sender: FDA-Public Use
  Company Number: TH-MERCK-1205USA00702

PATIENT
  Age: 85 Year
  Sex: Female

DRUGS (1)
  1. JANUVIA [Suspect]
     Indication: DIABETES MELLITUS
     Dosage: 1/2 TABLET OD
     Route: 048
     Dates: start: 20110401

REACTIONS (2)
  - INADEQUATE DIET [None]
  - RENAL FAILURE [None]
